FAERS Safety Report 19083290 (Version 1)
Quarter: 2021Q2

REPORT INFORMATION
  Report Type: Spontaneous
  Country: CN (occurrence: CN)
  Receive Date: 20210401
  Receipt Date: 20210401
  Transmission Date: 20210717
  Serious: Yes (Other)
  Sender: FDA-Public Use
  Company Number: CN-PFIZER INC-2021307790

PATIENT
  Sex: Male
  Weight: 55 kg

DRUGS (2)
  1. VFEND [Suspect]
     Active Substance: VORICONAZOLE
     Indication: ANTI-INFECTIVE THERAPY
     Dosage: 0.2 G, 2X/DAY
     Route: 041
     Dates: start: 20210301, end: 20210307
  2. FENG DI [Suspect]
     Active Substance: CEFOSELIS SULFATE
     Indication: ANTI-INFECTIVE THERAPY
     Dosage: 1 G, 2X/DAY
     Route: 041
     Dates: start: 20210301, end: 20210307

REACTIONS (5)
  - Oedema [Recovering/Resolving]
  - Headache [Recovering/Resolving]
  - Face oedema [Recovering/Resolving]
  - Localised oedema [Recovering/Resolving]
  - Vision blurred [Recovering/Resolving]

NARRATIVE: CASE EVENT DATE: 20210308
